FAERS Safety Report 9785578 (Version 1)
Quarter: 2013Q4

REPORT INFORMATION
  Report Type: Spontaneous
  Country: JP (occurrence: JP)
  Receive Date: 20131227
  Receipt Date: 20131227
  Transmission Date: 20140711
  Serious: Yes (Other)
  Sender: FDA-Public Use
  Company Number: JP-ASTELLAS-2013JP014220

PATIENT
  Age: 80 Year
  Sex: Female

DRUGS (1)
  1. PROGRAF [Suspect]
     Indication: MYASTHENIA GRAVIS
     Dosage: UNK
     Route: 065
     Dates: start: 201206, end: 2012

REACTIONS (1)
  - Renal disorder [Unknown]
